FAERS Safety Report 8549041-3 (Version None)
Quarter: 2012Q3

REPORT INFORMATION
  Report Type: 
  Country: None (occurrence: None)
  Receive Date: 20120730
  Receipt Date: 20120724
  Transmission Date: 20120928
  Serious: No
  Sender: FDA-Public Use
  Company Number: US-PFIZER INC-2012179615

PATIENT
  Sex: Male
  Weight: 81.633 kg

DRUGS (34)
  1. ATENOLOL [Concomitant]
     Indication: CARDIAC DISORDER
  2. LISINOPRIL [Concomitant]
     Indication: DIABETES MELLITUS
  3. AMLODIPINE [Concomitant]
     Indication: HYPERTENSION
     Dosage: 5 MG, 2X/DAY
  4. LIPITOR [Concomitant]
     Indication: CARDIAC DISORDER
  5. ACETYLSALICYLIC ACID [Concomitant]
     Indication: BLOOD CHOLESTEROL ABNORMAL
  6. METFORMIN [Concomitant]
     Indication: HYPERTENSION
     Dosage: 1000 MG, 2X/DAY
  7. ATENOLOL [Concomitant]
     Indication: DIABETES MELLITUS
  8. ZETIA [Concomitant]
     Indication: CARDIAC DISORDER
  9. ZETIA [Concomitant]
     Indication: BLOOD CHOLESTEROL ABNORMAL
  10. LIPITOR [Concomitant]
     Indication: BLOOD CHOLESTEROL ABNORMAL
  11. OMEPRAZOLE [Concomitant]
     Indication: CARDIAC DISORDER
  12. LISINOPRIL [Concomitant]
     Indication: HYPERTENSION
     Dosage: 40 MG, 2X/DAY
  13. LISINOPRIL [Concomitant]
     Indication: BLOOD CHOLESTEROL ABNORMAL
  14. ZETIA [Concomitant]
     Indication: HYPERTENSION
     Dosage: 10 MG, DAILY
  15. METFORMIN [Concomitant]
     Indication: BLOOD CHOLESTEROL ABNORMAL
  16. ACETYLSALICYLIC ACID [Concomitant]
     Indication: HYPERTENSION
     Dosage: 81 MG, DAILY
  17. VIAGRA [Suspect]
     Indication: ERECTILE DYSFUNCTION
     Dosage: 25 MG, AS NEEDED
     Route: 048
  18. ATENOLOL [Concomitant]
     Indication: HYPERTENSION
     Dosage: 25 MG, 2X/DAY
  19. ACETYLSALICYLIC ACID [Concomitant]
     Indication: DIABETES MELLITUS
  20. OMEPRAZOLE [Concomitant]
     Indication: HYPERTENSION
     Dosage: 20 MG, UNK
  21. LISINOPRIL [Concomitant]
     Indication: CARDIAC DISORDER
  22. AMLODIPINE [Concomitant]
     Indication: BLOOD CHOLESTEROL ABNORMAL
  23. METFORMIN [Concomitant]
     Indication: DIABETES MELLITUS
  24. LIPITOR [Concomitant]
     Indication: HYPERTENSION
     Dosage: 10 MG, DAILY
  25. LIPITOR [Concomitant]
     Indication: DIABETES MELLITUS
  26. AMLODIPINE [Concomitant]
     Indication: DIABETES MELLITUS
  27. AMLODIPINE [Concomitant]
     Indication: CARDIAC DISORDER
  28. ZETIA [Concomitant]
     Indication: DIABETES MELLITUS
  29. METFORMIN [Concomitant]
     Indication: CARDIAC DISORDER
  30. ACETYLSALICYLIC ACID [Concomitant]
     Indication: CARDIAC DISORDER
  31. OMEPRAZOLE [Concomitant]
     Indication: DIABETES MELLITUS
  32. OMEPRAZOLE [Concomitant]
     Indication: BLOOD CHOLESTEROL ABNORMAL
  33. VIAGRA [Suspect]
     Dosage: 50 MG, AS NEEDED
     Route: 048
  34. ATENOLOL [Concomitant]
     Indication: BLOOD CHOLESTEROL ABNORMAL

REACTIONS (2)
  - FLUSHING [None]
  - GLYCOSYLATED HAEMOGLOBIN INCREASED [None]
